FAERS Safety Report 8619545 (Version 2)
Quarter: 2012Q4

REPORT INFORMATION
  Report Type: 
  Country: GB (occurrence: GB)
  Receive Date: 20120618
  Receipt Date: 20121203
  Transmission Date: 20130627
  Serious: Yes (Other)
  Sender: FDA-Public Use
  Company Number: PHFR2011GB006415

PATIENT
  Age: 29 Year
  Sex: Male

DRUGS (4)
  1. CLOZARIL [Suspect]
     Indication: SCHIZOPHRENIA
     Dosage: 400 mg, UNK
     Route: 048
     Dates: start: 20100211
  2. PROPRANOLOL [Concomitant]
     Indication: TACHYCARDIA
     Dosage: 40 mg, BID
  3. PIRENZEPINE [Concomitant]
     Indication: SALIVARY HYPERSECRETION
     Dosage: 150 mg, UNK
  4. CETRIZINE [Concomitant]
     Indication: SEASONAL ALLERGY
     Dosage: 10 mg, UNK
     Route: 048

REACTIONS (3)
  - Differential white blood cell count abnormal [Unknown]
  - Neutrophil count increased [Unknown]
  - White blood cell count increased [Unknown]
